FAERS Safety Report 23917929 (Version 1)
Quarter: 2024Q2

REPORT INFORMATION
  Report Type: Spontaneous
  Country: ES (occurrence: ES)
  Receive Date: 20240530
  Receipt Date: 20240530
  Transmission Date: 20240715
  Serious: Yes (Other)
  Sender: FDA-Public Use
  Company Number: ES-BIOCODEX2-2024000741

PATIENT
  Age: 24 Month
  Sex: Male

DRUGS (3)
  1. DIACOMIT [Suspect]
     Active Substance: STIRIPENTOL
     Indication: Epileptic encephalopathy
     Route: 065
     Dates: start: 2017
  2. VALPROIC ACID [Interacting]
     Active Substance: VALPROIC ACID
     Indication: Epileptic encephalopathy
     Route: 065
  3. ETHOSUXIMIDE [Concomitant]
     Active Substance: ETHOSUXIMIDE
     Indication: Epileptic encephalopathy
     Route: 065

REACTIONS (5)
  - Gaze palsy [Unknown]
  - Product use in unapproved indication [Unknown]
  - Overdose [Unknown]
  - Drug ineffective for unapproved indication [Unknown]
  - Therapeutic response unexpected [Unknown]

NARRATIVE: CASE EVENT DATE: 20170101
